FAERS Safety Report 5303115-9 (Version None)
Quarter: 2007Q2

REPORT INFORMATION
  Report Type: 
  Country: None (occurrence: None)
  Receive Date: 20070420
  Receipt Date: 20070406
  Transmission Date: 20071010
  Serious: Yes (Hospitalization)
  Sender: FDA-Public Use
  Company Number: PHRM2007FR01247

PATIENT
  Age: 77 Year
  Sex: Female

DRUGS (6)
  1. TEGRETOL [Suspect]
     Dosage: 300 MG, BID
     Route: 048
  2. ALEPSAL [Suspect]
     Dosage: 150 MG, QD
     Route: 048
     Dates: end: 20070224
  3. TUSSIDANE [Concomitant]
     Route: 048
     Dates: start: 20070220
  4. AMOXICILLIN [Concomitant]
     Route: 048
     Dates: start: 20070220
  5. DOLIPRANE [Concomitant]
     Dosage: 1 G, TID
     Route: 048
  6. RISPERDAL [Concomitant]
     Dosage: 0.5 MG, BID
     Route: 048

REACTIONS (13)
  - ANALGESIC DRUG LEVEL ABOVE THERAPEUTIC [None]
  - ANOREXIA [None]
  - ANTICONVULSANT DRUG LEVEL ABOVE THERAPEUTIC [None]
  - C-REACTIVE PROTEIN INCREASED [None]
  - CONFUSIONAL STATE [None]
  - DRUG TOXICITY [None]
  - HAEMOGLOBIN DECREASED [None]
  - HYPOKALAEMIA [None]
  - INFLAMMATION [None]
  - LOSS OF CONSCIOUSNESS [None]
  - NORMOCHROMIC NORMOCYTIC ANAEMIA [None]
  - PAIN IN EXTREMITY [None]
  - SPEECH DISORDER [None]
